FAERS Safety Report 11260400 (Version 10)
Quarter: 2016Q1

REPORT INFORMATION
  Report Type: Report from Study
  Country: CN (occurrence: CN)
  Receive Date: 20150710
  Receipt Date: 20160229
  Transmission Date: 20160525
  Serious: Yes (Life-Threatening, Hospitalization)
  Sender: FDA-Public Use
  Company Number: CN-BAYER-2015-367179

PATIENT
  Age: 44 Year
  Sex: Male
  Weight: 53 kg

DRUGS (11)
  1. PLASMA [Concomitant]
     Active Substance: HUMAN PLASMA
     Indication: HYPOALBUMINAEMIA
     Dosage: DAILY DOSE 100 ML
     Route: 042
     Dates: start: 20150606, end: 20150606
  2. REGORAFENIB [Suspect]
     Active Substance: REGORAFENIB
     Indication: HEPATOCELLULAR CARCINOMA
     Dosage: 160 MG, QD
     Route: 048
     Dates: start: 20150506, end: 20150526
  3. MONTMORILLONITE [Concomitant]
     Active Substance: MONTMORILLONITE
     Indication: DIARRHOEA
     Dosage: DAILY DOSE 9 G
     Route: 048
     Dates: start: 20150125, end: 20150128
  4. REGORAFENIB [Suspect]
     Active Substance: REGORAFENIB
     Indication: HEPATOCELLULAR CARCINOMA
     Dosage: 160 MG, QD
     Route: 048
     Dates: start: 20150408, end: 20150423
  5. REGORAFENIB [Suspect]
     Active Substance: REGORAFENIB
     Indication: HEPATOCELLULAR CARCINOMA
     Dosage: 160 MG, QD
     Route: 048
     Dates: start: 20150114, end: 20150203
  6. REGORAFENIB [Suspect]
     Active Substance: REGORAFENIB
     Indication: HEPATOCELLULAR CARCINOMA
     Dosage: 160 MG, QD
     Route: 048
     Dates: start: 20150311, end: 20150331
  7. REGORAFENIB [Suspect]
     Active Substance: REGORAFENIB
     Indication: HEPATOCELLULAR CARCINOMA
     Dosage: 160 MG, QD
     Route: 048
     Dates: start: 20150211, end: 20150303
  8. REGORAFENIB [Suspect]
     Active Substance: REGORAFENIB
     Indication: HEPATOCELLULAR CARCINOMA
     Dosage: 160 MG, QD
     Route: 048
     Dates: start: 20150603, end: 20150623
  9. REGORAFENIB [Suspect]
     Active Substance: REGORAFENIB
     Indication: HEPATOCELLULAR CARCINOMA
     Dosage: 160 MG, QD
     Route: 048
     Dates: start: 20160113
  10. LAMIVUDINE. [Concomitant]
     Active Substance: LAMIVUDINE
     Indication: CHRONIC HEPATITIS B
     Dosage: DAILY DOSE .1 G
     Route: 048
     Dates: start: 201009
  11. ALBUMIN HUMAN [ALBUMIN HUMAN] [Concomitant]
     Indication: HYPOALBUMINAEMIA
     Dosage: DAILY DOSE 10 G
     Route: 042
     Dates: start: 20150606, end: 20150606

REACTIONS (2)
  - Anaemia [Recovered/Resolved]
  - Back pain [Recovered/Resolved with Sequelae]

NARRATIVE: CASE EVENT DATE: 20150603
